FAERS Safety Report 10248664 (Version 2)
Quarter: 2014Q2

REPORT INFORMATION
  Report Type: Spontaneous
  Country: DE (occurrence: None)
  Receive Date: 20140618
  Receipt Date: 20140624
  Transmission Date: 20141212
  Serious: Yes (Death, Life-Threatening, Other)
  Sender: FDA-Public Use
  Company Number: AUR-APL-2014-06373

PATIENT
  Age: 74 Year
  Sex: Female

DRUGS (5)
  1. RAMIPRIL [Suspect]
     Indication: PRODUCT USED FOR UNKNOWN INDICATION
     Route: 048
     Dates: end: 20140320
  2. TAVOR (LORAZEPAM) [Concomitant]
  3. L-THYROXIN [Concomitant]
  4. METFORMIN (METFORMIN) [Concomitant]
  5. KALINOR [Concomitant]

REACTIONS (7)
  - Myocardial infarction [None]
  - Aspartate aminotransferase increased [None]
  - Alanine aminotransferase increased [None]
  - Bundle branch block [None]
  - Shock [None]
  - Loss of consciousness [None]
  - Sinus tachycardia [None]
